FAERS Safety Report 16658227 (Version 1)
Quarter: 2019Q3

REPORT INFORMATION
  Report Type: Spontaneous
  Country: FR (occurrence: FR)
  Receive Date: 20190801
  Receipt Date: 20190801
  Transmission Date: 20191004
  Serious: Yes (Hospitalization)
  Sender: FDA-Public Use
  Company Number: PHHY2019FR177545

PATIENT
  Age: 61 Year
  Sex: Female
  Weight: 57 kg

DRUGS (5)
  1. PRAZEPAM [Suspect]
     Active Substance: PRAZEPAM
     Dosage: 20 DF, 1 TOTAL
     Route: 048
     Dates: start: 20180518, end: 20180518
  2. ABILIFY [Suspect]
     Active Substance: ARIPIPRAZOLE
     Indication: SUICIDE ATTEMPT
     Dosage: 20 DF, 1 TOTAL
     Route: 048
     Dates: start: 20180518, end: 20180518
  3. FLUOXETINE [Suspect]
     Active Substance: FLUOXETINE HYDROCHLORIDE
     Indication: SUICIDE ATTEMPT
     Dosage: 10 DF, 1 TOTAL
     Route: 048
     Dates: start: 20180518, end: 20180518
  4. PRAZEPAM [Suspect]
     Active Substance: PRAZEPAM
     Indication: SUICIDE ATTEMPT
     Dosage: 15 DF, 1 TOTAL
     Route: 048
     Dates: start: 20180518
  5. XARELTO [Suspect]
     Active Substance: RIVAROXABAN
     Indication: SUICIDE ATTEMPT
     Dosage: 10 DF, 1 TOTAL
     Route: 048
     Dates: start: 20180518, end: 20180518

REACTIONS (2)
  - Toxicity to various agents [Recovered/Resolved]
  - Haemorrhage [Recovered/Resolved]

NARRATIVE: CASE EVENT DATE: 20180518
